FAERS Safety Report 8291860-5 (Version None)
Quarter: 2012Q2

REPORT INFORMATION
  Report Type: 
  Country: None (occurrence: None)
  Receive Date: 20120413
  Receipt Date: 20120403
  Transmission Date: 20120825
  Serious: No
  Sender: FDA-Public Use
  Company Number: THQ2012A02538

PATIENT
  Sex: Male

DRUGS (6)
  1. LOSARTAN POTASSIUM [Concomitant]
  2. ACTOS [Suspect]
     Indication: DIABETES MELLITUS
     Dosage: 30 MG (30 MG, 1 IN 1 D)
     Route: 048
     Dates: start: 20020101, end: 20120201
  3. SITAGLIPTIN AND METFORMIN HYDROCHLORIDE [Concomitant]
  4. ACETYLSALICYLIC ACID SRT [Concomitant]
  5. COLECALCIFEROL [Concomitant]
  6. VYTORIN [Concomitant]

REACTIONS (2)
  - RECTAL CANCER [None]
  - BLADDER TRANSITIONAL CELL CARCINOMA [None]
